FAERS Safety Report 18594823 (Version 1)
Quarter: 2020Q4

REPORT INFORMATION
  Report Type: Report from Study
  Country: US (occurrence: US)
  Receive Date: 20201209
  Receipt Date: 20201209
  Transmission Date: 20210114
  Serious: No
  Sender: FDA-Public Use
  Company Number: US-HORIZON-2020HZN02064

PATIENT
  Age: 71 Year
  Sex: Male
  Weight: 78 kg

DRUGS (8)
  1. ASPIRIN 81MG TAB CHEW [Concomitant]
  2. MAGNESIUM 250MG TABLET [Concomitant]
  3. IRON 325 (65) TABLET [Concomitant]
  4. CRESTOR 20MG TABLET [Concomitant]
  5. TEPEZZA [Suspect]
     Active Substance: TEPROTUMUMAB-TRBW
     Indication: BASEDOW^S DISEASE
     Route: 050
     Dates: start: 20200810, end: 2020
  6. NOVOLOG 100/ML VIAL [Concomitant]
  7. LEVOTHYROXINE SODIUM 150 MCG TABLET [Concomitant]
  8. LEVEMIR [Concomitant]
     Active Substance: INSULIN DETEMIR

REACTIONS (1)
  - Pain in extremity [Unknown]
